FAERS Safety Report 21623823 (Version 1)
Quarter: 2022Q4

REPORT INFORMATION
  Report Type: Spontaneous
  Country: US (occurrence: None)
  Receive Date: 20221120
  Receipt Date: 20221120
  Transmission Date: 20230113
  Serious: Yes (Death)
  Sender: FDA-Public Use
  Company Number: None

PATIENT
  Age: 64 Year
  Sex: Male
  Weight: 78.65 kg

DRUGS (17)
  1. PROMACTA [Suspect]
     Active Substance: ELTROMBOPAG OLAMINE
     Indication: Thrombocytopenia
     Dosage: FREQUENCY : AT BEDTIME;?
     Route: 048
  2. BISACODYL [Concomitant]
     Active Substance: BISACODYL
  3. CARAFATE [Concomitant]
     Active Substance: SUCRALFATE
  4. COREG [Concomitant]
     Active Substance: CARVEDILOL
  5. FERROUS SULFATE [Concomitant]
     Active Substance: FERROUS SULFATE
  6. GABAPENTIN [Concomitant]
     Active Substance: GABAPENTIN
  7. HYDROXYZINE [Concomitant]
     Active Substance: HYDROXYZINE HYDROCHLORIDE
  8. LACTULOSE [Concomitant]
     Active Substance: LACTULOSE
  9. MIDODRINE [Concomitant]
     Active Substance: MIDODRINE
  10. VITAMINS [Concomitant]
     Active Substance: VITAMINS
  11. NOVOLOG [Concomitant]
     Active Substance: INSULIN ASPART
  12. ONDANSETRON [Concomitant]
     Active Substance: ONDANSETRON
  13. OYSTER SHELL [Concomitant]
     Active Substance: OSTREA EDULIS SHELL
  14. PANTOPRAZOLE [Concomitant]
     Active Substance: PANTOPRAZOLE
  15. SENNA [Concomitant]
     Active Substance: SENNA LEAF\SENNOSIDES\SENNOSIDES A AND B
  16. SODIUM BICARBONATE [Concomitant]
     Active Substance: SODIUM BICARBONATE
  17. XIFAXAN [Concomitant]
     Active Substance: RIFAXIMIN

REACTIONS (1)
  - Death [None]
